FAERS Safety Report 10168699 (Version 2)
Quarter: 2014Q2

REPORT INFORMATION
  Report Type: Spontaneous
  Country: US (occurrence: None)
  Receive Date: 20140509
  Receipt Date: 20140626
  Transmission Date: 20141212
  Serious: Yes (Other)
  Sender: FDA-Public Use
  Company Number: AUR-APL-2014-05342

PATIENT
  Age: 60 Year
  Sex: Male

DRUGS (2)
  1. VALSARTAN AND HYDROCHLOROTHIAZIDE [Suspect]
     Indication: RENAL DISORDER
  2. VALSARTAN AND HYDROCHLOROTHIAZIDE [Suspect]
     Indication: OFF LABEL USE

REACTIONS (3)
  - Off label use [None]
  - Hypertension [None]
  - Drug ineffective [None]
